FAERS Safety Report 17807891 (Version 1)
Quarter: 2020Q2

REPORT INFORMATION
  Report Type: Spontaneous
  Country: US (occurrence: US)
  Receive Date: 20200520
  Receipt Date: 20200520
  Transmission Date: 20200714
  Serious: Yes (Other)
  Sender: FDA-Public Use
  Company Number: US-PFIZER INC-2020198446

PATIENT
  Age: 64 Year
  Sex: Male
  Weight: 62.14 kg

DRUGS (2)
  1. RETACRIT [Suspect]
     Active Substance: EPOETIN ALFA-EPBX
     Indication: HAEMOGLOBIN DECREASED
     Dosage: 40,000 UNITS ONCE PER WEEK FOR FOUR WEEKS, THEN STOPS AND HEMOGLOBIN IS CHECKED
     Dates: start: 201901
  2. EPOGEN [Concomitant]
     Active Substance: ERYTHROPOIETIN
     Dosage: UNK

REACTIONS (1)
  - Breast cancer male [Unknown]

NARRATIVE: CASE EVENT DATE: 20200506
